FAERS Safety Report 7208843-6 (Version None)
Quarter: 2011Q1

REPORT INFORMATION
  Report Type: 
  Country: None (occurrence: None)
  Receive Date: 20110104
  Receipt Date: 20101224
  Transmission Date: 20110831
  Serious: Yes (Hospitalization)
  Sender: FDA-Public Use
  Company Number: JP-SANOFI-AVENTIS-2010SA066119

PATIENT
  Sex: Male
  Weight: 67 kg

DRUGS (22)
  1. MAGNESIUM OXIDE HEAVY [Concomitant]
     Indication: CONSTIPATION
     Route: 048
     Dates: start: 20100514
  2. BLINDED THERAPY [Suspect]
     Route: 048
     Dates: start: 20091224, end: 20100318
  3. ATORVASTATIN [Concomitant]
     Route: 048
     Dates: start: 20090226
  4. FELBINAC [Concomitant]
     Route: 062
     Dates: start: 20100318
  5. ALOSENN [Concomitant]
     Indication: CONSTIPATION
     Route: 048
     Dates: start: 20090226
  6. GLIBENCLAMIDE [Concomitant]
     Route: 048
     Dates: start: 20100226
  7. FAMOTIDINE [Concomitant]
     Route: 048
     Dates: start: 20100226
  8. FUROSEMIDE [Concomitant]
     Indication: CARDIAC FAILURE CONGESTIVE
     Route: 048
     Dates: start: 20091119
  9. EPINASTINE HYDROCHLORIDE [Concomitant]
     Route: 048
     Dates: start: 20100210
  10. HYDROCORTISONE BUTYRATE [Concomitant]
     Indication: DERMATITIS
     Route: 062
     Dates: start: 20100210
  11. CILOSTAZOL [Concomitant]
     Indication: THROMBOSIS PROPHYLAXIS
     Route: 048
     Dates: start: 20090807, end: 20101029
  12. TAMBOCOR [Concomitant]
     Indication: ARRHYTHMIA
     Route: 048
     Dates: start: 20101111
  13. METFORMIN HYDROCHLORIDE [Concomitant]
     Indication: DIABETES MELLITUS
     Route: 048
     Dates: start: 20090226
  14. OMEPRAL [Concomitant]
     Indication: GASTRIC HAEMORRHAGE
     Dates: start: 20101102
  15. ENALAPRIL [Concomitant]
     Route: 048
     Dates: start: 20090226
  16. PIOGLITAZONE HYDROCHLORIDE [Concomitant]
     Route: 048
     Dates: start: 20090226
  17. AMLODIPINE BESYLATE [Concomitant]
     Indication: HYPERTENSION
     Route: 048
     Dates: start: 20090226
  18. HUMALIN [Concomitant]
     Indication: DIABETES MELLITUS
     Route: 058
     Dates: start: 20101102
  19. CLOPIDOGREL BISULFATE [Suspect]
     Route: 048
     Dates: start: 20100319, end: 20101029
  20. SPIRONOLACTONE [Concomitant]
     Indication: CARDIAC FAILURE CONGESTIVE
     Route: 048
     Dates: start: 20091119
  21. LAXOBERON [Concomitant]
     Indication: CONSTIPATION
     Dates: start: 20101102
  22. SODIUM PICOSULFATE [Concomitant]

REACTIONS (4)
  - GASTRIC CANCER [None]
  - ANAEMIA [None]
  - GASTROINTESTINAL HAEMORRHAGE [None]
  - LARGE INTESTINE CARCINOMA [None]
